FAERS Safety Report 20625693 (Version 1)
Quarter: 2022Q1

REPORT INFORMATION
  Report Type: Spontaneous
  Country: US (occurrence: None)
  Receive Date: 20220323
  Receipt Date: 20220323
  Transmission Date: 20220423
  Serious: No
  Sender: FDA-Public Use
  Company Number: US-ROCHE-2796450

PATIENT
  Age: 80 Year
  Sex: Male
  Weight: 97.52 kg

DRUGS (9)
  1. ERIVEDGE [Suspect]
     Active Substance: VISMODEGIB
     Indication: Basal cell carcinoma
     Route: 048
     Dates: start: 20210302
  2. ERIVEDGE [Suspect]
     Active Substance: VISMODEGIB
     Dosage: LAST DOSE ADMINISTERED ON 22/APR/2021
     Route: 065
     Dates: start: 2021, end: 20210422
  3. SKELAXIN [Suspect]
     Active Substance: METAXALONE
     Indication: Muscle spasms
     Route: 065
  4. CYCLOBENZAPRINE [Suspect]
     Active Substance: CYCLOBENZAPRINE
     Indication: Product used for unknown indication
     Route: 065
  5. ACETAMINOPHEN [Concomitant]
     Active Substance: ACETAMINOPHEN
  6. HYDROCODONE [Concomitant]
     Active Substance: HYDROCODONE
     Dosage: 7.5-325 M
  7. LISINOPRIL [Concomitant]
     Active Substance: LISINOPRIL
  8. PROMETHAZINE [Concomitant]
     Active Substance: PROMETHAZINE HYDROCHLORIDE
  9. SIMVASTATIN [Concomitant]
     Active Substance: SIMVASTATIN

REACTIONS (3)
  - Somnolence [Not Recovered/Not Resolved]
  - Muscle spasms [Unknown]
  - Muscle spasms [Not Recovered/Not Resolved]

NARRATIVE: CASE EVENT DATE: 20210401
